FAERS Safety Report 19711440 (Version 5)
Quarter: 2021Q4

REPORT INFORMATION
  Report Type: Report from Study
  Country: CL (occurrence: CL)
  Receive Date: 20210817
  Receipt Date: 20211208
  Transmission Date: 20220303
  Serious: Yes (Hospitalization, Other)
  Sender: FDA-Public Use
  Company Number: CL-BRISTOL-MYERS SQUIBB COMPANY-BMS-2021-080375

PATIENT
  Age: 72 Year
  Sex: Female
  Weight: 86 kg

DRUGS (16)
  1. NIVOLUMAB [Suspect]
     Active Substance: NIVOLUMAB
     Indication: Hepatocellular carcinoma
     Dosage: 86 MILLIGRAM
     Route: 065
     Dates: start: 20210520, end: 20210520
  2. NIVOLUMAB [Suspect]
     Active Substance: NIVOLUMAB
     Dosage: 84 MILLIGRAM
     Route: 065
     Dates: start: 20210610, end: 20210610
  3. IPILIMUMAB [Suspect]
     Active Substance: IPILIMUMAB
     Indication: Hepatocellular carcinoma
     Dosage: 258 MILLIGRAM
     Route: 065
     Dates: start: 20210520, end: 20210520
  4. IPILIMUMAB [Suspect]
     Active Substance: IPILIMUMAB
     Dosage: 252 MILLIGRAM
     Route: 065
     Dates: start: 20210610, end: 20210610
  5. INVESTIGATIONAL PRODUCT [Concomitant]
     Active Substance: INVESTIGATIONAL PRODUCT
     Indication: Prophylaxis
     Dosage: UNK
     Route: 030
     Dates: start: 20210521
  6. INVESTIGATIONAL PRODUCT [Concomitant]
     Active Substance: INVESTIGATIONAL PRODUCT
     Dosage: UNK
     Route: 030
     Dates: start: 20210421
  7. LOSARTAN [Concomitant]
     Active Substance: LOSARTAN
     Indication: Product used for unknown indication
     Dosage: UNK
     Route: 048
     Dates: start: 2011
  8. ONDANSETRON [Concomitant]
     Active Substance: ONDANSETRON
     Indication: Product used for unknown indication
     Dosage: 8 MILLIGRAM
     Route: 048
     Dates: start: 20210630
  9. ONDANSETRON [Concomitant]
     Active Substance: ONDANSETRON
     Dosage: 8 MILLIGRAM
     Route: 042
     Dates: start: 20210810, end: 20210810
  10. SODIUM CHLORIDE [Concomitant]
     Active Substance: SODIUM CHLORIDE
     Indication: Product used for unknown indication
     Dosage: 1 ABSENT
     Route: 042
     Dates: start: 20210630
  11. PERENTERYL [Concomitant]
     Indication: Product used for unknown indication
     Dosage: 250 MILLIGRAM
     Route: 048
     Dates: start: 20210804, end: 20210810
  12. FUROSEMIDE [Concomitant]
     Active Substance: FUROSEMIDE
     Indication: Product used for unknown indication
     Dosage: 20 MILLIGRAM
     Route: 048
     Dates: start: 20210806, end: 20210810
  13. ACETAMINOPHEN [Concomitant]
     Active Substance: ACETAMINOPHEN
     Indication: Product used for unknown indication
     Dosage: 1 GRAM
     Route: 042
     Dates: start: 20210810, end: 20210810
  14. ACETAMINOPHEN [Concomitant]
     Active Substance: ACETAMINOPHEN
     Dosage: 1 GRAM
     Route: 048
     Dates: start: 20210810
  15. UREA [Concomitant]
     Active Substance: UREA
     Indication: Product used for unknown indication
     Dosage: 1 ABSENT
     Route: 061
     Dates: start: 20210810
  16. NOREPINEPHRINE [Concomitant]
     Active Substance: NOREPINEPHRINE
     Indication: Product used for unknown indication
     Dosage: 4000 MILLIGRAM
     Route: 042
     Dates: start: 20210810, end: 20210811

REACTIONS (1)
  - Acute kidney injury [Recovered/Resolved]

NARRATIVE: CASE EVENT DATE: 20210810
